FAERS Safety Report 17376962 (Version 2)
Quarter: 2020Q2

REPORT INFORMATION
  Report Type: Spontaneous
  Country: US (occurrence: US)
  Receive Date: 20200206
  Receipt Date: 20200505
  Transmission Date: 20200713
  Serious: No
  Sender: FDA-Public Use
  Company Number: US-PFIZER INC-2020048250

PATIENT
  Age: 18 Year
  Sex: Male
  Weight: 77.1 kg

DRUGS (1)
  1. TETRACYCLINE HCL [Suspect]
     Active Substance: TETRACYCLINE HYDROCHLORIDE
     Indication: EAR INFECTION
     Dosage: UNK
     Dates: start: 19620501

REACTIONS (6)
  - Tooth discolouration [Unknown]
  - Social problem [Unknown]
  - Infertility male [Not Recovered/Not Resolved]
  - Tooth disorder [Not Recovered/Not Resolved]
  - Impaired quality of life [Unknown]
  - Mental disorder [Unknown]

NARRATIVE: CASE EVENT DATE: 196205
